FAERS Safety Report 8621731-3 (Version None)
Quarter: 2012Q3

REPORT INFORMATION
  Report Type: 
  Country: None (occurrence: None)
  Receive Date: 20120821
  Receipt Date: 20120821
  Transmission Date: 20120928
  Serious: Yes (Hospitalization)
  Sender: FDA-Public Use
  Company Number: None

PATIENT
  Age: 31 Year
  Sex: Male
  Weight: 74.8435 kg

DRUGS (2)
  1. PRAVASTATIN [Suspect]
     Dosage: 40 MG, AT BEDTIME, PO
     Route: 048
     Dates: start: 20120514, end: 20120719
  2. CHLORPROMAZINE HCL [Suspect]
     Dosage: 10 MG, BID, PO
     Route: 048
     Dates: start: 20120625

REACTIONS (4)
  - HEPATIC ENZYME INCREASED [None]
  - LIVER FUNCTION TEST ABNORMAL [None]
  - BLOOD CREATINE PHOSPHOKINASE INCREASED [None]
  - INTERNATIONAL NORMALISED RATIO ABNORMAL [None]
